FAERS Safety Report 17050143 (Version 2)
Quarter: 2020Q1

REPORT INFORMATION
  Report Type: Report from Study
  Country: US (occurrence: US)
  Receive Date: 20191119
  Receipt Date: 20200224
  Transmission Date: 20200409
  Serious: Yes (Hospitalization)
  Sender: FDA-Public Use
  Company Number: US-ACTELION-A-NJ2019-193052

PATIENT
  Age: 25 Year
  Sex: Female
  Weight: 90.7 kg

DRUGS (5)
  1. VELETRI [Suspect]
     Active Substance: EPOPROSTENOL
     Indication: PULMONARY ARTERIAL HYPERTENSION
     Dosage: 21 NG/KG, PER MIN
     Route: 042
     Dates: start: 20190510
  2. OPSUMIT [Suspect]
     Active Substance: MACITENTAN
     Indication: PULMONARY ARTERIAL HYPERTENSION
     Dosage: 10 MG, QD
     Route: 048
     Dates: start: 20190529
  3. VELETRI [Suspect]
     Active Substance: EPOPROSTENOL
     Dosage: 15 NG/KG, PER MIN
     Route: 042
  4. TADALAFIL. [Concomitant]
     Active Substance: TADALAFIL
     Dosage: 20 MG, QD
     Dates: start: 20190606
  5. WARFARIN [Concomitant]
     Active Substance: WARFARIN

REACTIONS (9)
  - Rash [Unknown]
  - Device breakage [Unknown]
  - Pain in jaw [Unknown]
  - Device connection issue [Recovered/Resolved]
  - Nausea [Not Recovered/Not Resolved]
  - Dyspnoea [Recovering/Resolving]
  - Vomiting [Not Recovered/Not Resolved]
  - Headache [Unknown]
  - Diarrhoea [Unknown]

NARRATIVE: CASE EVENT DATE: 20191030
